FAERS Safety Report 6918335-7 (Version None)
Quarter: 2010Q3

REPORT INFORMATION
  Report Type: 
  Country: None (occurrence: None)
  Receive Date: 20100811
  Receipt Date: 20100802
  Transmission Date: 20110219
  Serious: No
  Sender: FDA-Public Use
  Company Number: US-BIOGENIDEC-2010BI014942

PATIENT
  Age: 40 Year
  Sex: Female

DRUGS (2)
  1. TYSABRI [Suspect]
     Indication: MULTIPLE SCLEROSIS
     Route: 042
     Dates: start: 20100401, end: 20100401
  2. TYSABRI [Suspect]
     Route: 042
     Dates: start: 20100501, end: 20100528

REACTIONS (6)
  - FALL [None]
  - HEART RATE INCREASED [None]
  - PAIN IN EXTREMITY [None]
  - PRURITUS GENERALISED [None]
  - RASH [None]
  - URTICARIA [None]
